FAERS Safety Report 7342840-5 (Version None)
Quarter: 2011Q1

REPORT INFORMATION
  Report Type: 
  Country: None (occurrence: None)
  Receive Date: 20110307
  Receipt Date: 20110307
  Transmission Date: 20110831
  Serious: No
  Sender: FDA-Public Use
  Company Number: None

PATIENT
  Age: 43 Year
  Sex: Female

DRUGS (1)
  1. ESTRADIOL [Suspect]
     Dosage: 1 PATCH WEEKLY TOPICAL/TRANSDERMAL
     Route: 062

REACTIONS (2)
  - PRODUCT SUBSTITUTION ISSUE [None]
  - SKIN REACTION [None]
